FAERS Safety Report 7180793-3 (Version None)
Quarter: 2010Q4

REPORT INFORMATION
  Report Type: 
  Country: None (occurrence: None)
  Receive Date: 20101221
  Receipt Date: 20101209
  Transmission Date: 20110411
  Serious: Yes (Hospitalization)
  Sender: FDA-Public Use
  Company Number: NL-GENENTECH-307574

PATIENT
  Sex: Female
  Weight: 65 kg

DRUGS (26)
  1. RITUXIMAB [Suspect]
     Indication: B-CELL LYMPHOMA
     Dosage: 700 MG, UNK
     Route: 042
     Dates: start: 20100712
  2. RITUXIMAB [Suspect]
     Dosage: 600 MG, UNK
     Route: 042
     Dates: start: 20100906
  3. RITUXIMAB [Suspect]
     Dosage: 600 MG, UNK
     Route: 042
     Dates: start: 20100927
  4. PREDNISOLONE [Suspect]
     Indication: B-CELL LYMPHOMA
     Dosage: 100 MG, UNK
     Route: 048
     Dates: start: 20100701
  5. PREDNISOLONE [Suspect]
     Dosage: 100 MG, UNK
     Route: 048
     Dates: start: 20100906
  6. PREDNISOLONE [Suspect]
     Dosage: 100 MG, UNK
     Route: 048
  7. CYCLOPHOSPHAMIDE [Suspect]
     Indication: B-CELL LYMPHOMA
     Dosage: 1300 MG, UNK
     Route: 042
     Dates: start: 20100712
  8. CYCLOPHOSPHAMIDE [Suspect]
     Dosage: 1200 MG, UNK
     Route: 042
     Dates: start: 20100906
  9. CYCLOPHOSPHAMIDE [Suspect]
     Dosage: 1200 MG, UNK
     Route: 042
     Dates: start: 20100927
  10. DOXORUBIN [Suspect]
     Indication: B-CELL LYMPHOMA
     Dosage: 87 MG, UNK
     Route: 042
     Dates: start: 20100712
  11. DOXORUBIN [Suspect]
     Dosage: 80 MG, UNK
     Route: 042
     Dates: start: 20100906
  12. DOXORUBIN [Suspect]
     Dosage: 80 MG, UNK
     Route: 042
     Dates: start: 20100927
  13. VINCRISTINE [Suspect]
     Indication: B-CELL LYMPHOMA
     Dosage: 2 MG, UNK
     Route: 042
     Dates: start: 20100712
  14. VINCRISTINE [Suspect]
     Dosage: 2 MG, UNK
     Route: 042
     Dates: start: 20100906
  15. VINCRISTINE [Suspect]
     Dosage: 2 MG, UNK
     Route: 042
     Dates: start: 20100927
  16. G-CSF [Suspect]
     Indication: B-CELL LYMPHOMA
     Dosage: 6 MG, UNK
     Route: 058
     Dates: start: 20100715
  17. G-CSF [Suspect]
     Dosage: UNK
     Route: 058
     Dates: start: 20100909
  18. G-CSF [Suspect]
     Dosage: 6 MG, UNK
     Route: 058
     Dates: start: 20100930
  19. DICLOXACILLIN [Concomitant]
     Indication: NEUTROPENIC INFECTION
     Dosage: 1 G, UNK
     Route: 048
     Dates: start: 20100809, end: 20100814
  20. SULFAMETHOXAZOLE AND TRIMETHOPRIM [Concomitant]
     Indication: INFECTION PROPHYLAXIS
     Dosage: UNK
     Route: 048
     Dates: start: 20100806, end: 20100809
  21. FLUCONAZOLE [Concomitant]
     Indication: ORAL FUNGAL INFECTION
     Dosage: 400 MG, UNK
     Route: 048
     Dates: start: 20100707
  22. BIOCLAVID [Concomitant]
     Indication: NEUTROPENIA
     Dosage: UNK
     Route: 048
     Dates: start: 20100707
  23. CIPROFLOXACIN [Concomitant]
     Indication: NEUTROPENIA
     Dosage: 500 MG, UNK
     Route: 048
     Dates: start: 20100707
  24. CIPROFLOXACIN [Concomitant]
     Dosage: 1000 MG, UNK
     Route: 048
     Dates: start: 20101001, end: 20101004
  25. PANTOPRAZOLE [Concomitant]
     Indication: PROPHYLAXIS AGAINST GASTROINTESTINAL ULCER
     Dosage: 40 MG, UNK
     Route: 048
     Dates: start: 20100904, end: 20101004
  26. AMOXICILLIN [Concomitant]
     Indication: NEUTROPENIC INFECTION
     Dosage: UNK
     Route: 048
     Dates: start: 20101001, end: 20101004

REACTIONS (2)
  - FEBRILE NEUTROPENIA [None]
  - NEUTROPENIC INFECTION [None]
